FAERS Safety Report 9649071 (Version 3)
Quarter: 2013Q4

REPORT INFORMATION
  Report Type: Spontaneous
  Country: US (occurrence: US)
  Receive Date: 20131028
  Receipt Date: 20131206
  Transmission Date: 20140711
  Serious: Yes (Hospitalization)
  Sender: FDA-Public Use
  Company Number: CHPA2013US016134

PATIENT
  Age: 72 Year
  Sex: Female

DRUGS (2)
  1. VAGISTAT-1 [Suspect]
     Indication: FUNGAL INFECTION
     Dosage: UNK, PRN
     Route: 067
  2. VAGISTAT-3 [Concomitant]
     Indication: FUNGAL INFECTION
     Dosage: UNK, PRN
     Route: 067

REACTIONS (4)
  - Pneumonia [Not Recovered/Not Resolved]
  - Sinus congestion [Recovered/Resolved]
  - Headache [Recovered/Resolved]
  - Lung disorder [Not Recovered/Not Resolved]
